FAERS Safety Report 18486328 (Version 1)
Quarter: 2020Q4

REPORT INFORMATION
  Report Type: Spontaneous
  Country: US (occurrence: US)
  Receive Date: 20201110
  Receipt Date: 20201110
  Transmission Date: 20210114
  Serious: Yes (Hospitalization)
  Sender: FDA-Public Use
  Company Number: None

PATIENT
  Age: 73 Year
  Sex: Male

DRUGS (3)
  1. PEMBROLIZUMAB (PEMBROLIZUMAB 50MG/VIL INJ) [Suspect]
     Active Substance: PEMBROLIZUMAB
     Indication: NEOPLASM MALIGNANT
     Dosage: ?          OTHER STRENGTH:50MG/VIL;?
     Dates: start: 20200824, end: 20200824
  2. DOCETAXEL. [Suspect]
     Active Substance: DOCETAXEL
     Indication: NEOPLASM MALIGNANT
     Dosage: ?          OTHER STRENGTH:20MG/VIL;?
     Dates: start: 20200824, end: 20200824
  3. DOCETAXEL. [Suspect]
     Active Substance: DOCETAXEL
     Indication: NEOPLASM MALIGNANT
     Dates: start: 20200824, end: 20200824

REACTIONS (4)
  - Diarrhoea [None]
  - Vomiting [None]
  - Pyrexia [None]
  - Nausea [None]

NARRATIVE: CASE EVENT DATE: 20200826
